FAERS Safety Report 12659460 (Version 1)
Quarter: 2016Q3

REPORT INFORMATION
  Report Type: Spontaneous
  Country: US (occurrence: US)
  Receive Date: 20160817
  Receipt Date: 20160817
  Transmission Date: 20161109
  Serious: No
  Sender: FDA-Public Use
  Company Number: US-GLAXOSMITHKLINE-US2016GSK111138

PATIENT

DRUGS (2)
  1. FLONASE [Suspect]
     Active Substance: FLUTICASONE PROPIONATE
     Indication: INFECTION PROPHYLAXIS
     Dosage: 1 DF, QD
     Dates: start: 201605
  2. ALEGRA (LORATADINE) [Suspect]
     Active Substance: LORATADINE
     Indication: PRODUCT USED FOR UNKNOWN INDICATION
     Dosage: UNK UNK, U

REACTIONS (5)
  - Hypogeusia [Not Recovered/Not Resolved]
  - Sinus disorder [Unknown]
  - Anxiety [Not Recovered/Not Resolved]
  - Nasal disorder [Unknown]
  - Hyposmia [Not Recovered/Not Resolved]
